FAERS Safety Report 8195721-1 (Version None)
Quarter: 2012Q1

REPORT INFORMATION
  Report Type: 
  Country: None (occurrence: None)
  Receive Date: 20120308
  Receipt Date: 20120301
  Transmission Date: 20120608
  Serious: Yes (Other)
  Sender: FDA-Public Use
  Company Number: GB-B.I. PHARMACEUTICALS,INC./RIDGEFIELD-2012-UK-00295UK

PATIENT
  Sex: Female

DRUGS (3)
  1. ABACAVIR SULFATE/LAMIVUDINE [Suspect]
     Indication: HIV INFECTION
     Dosage: 1 ANZ
     Route: 048
  2. EYE DROPS [Concomitant]
     Indication: GLAUCOMA
  3. VIRAMUNE [Suspect]
     Indication: HIV INFECTION
     Dosage: 400 MG
     Route: 048

REACTIONS (3)
  - OPTIC NERVE DISORDER [None]
  - GLAUCOMA [None]
  - COLOUR BLINDNESS ACQUIRED [None]
